FAERS Safety Report 6511054-0 (Version None)
Quarter: 2009Q4

REPORT INFORMATION
  Report Type: 
  Country: None (occurrence: None)
  Receive Date: 20091222
  Receipt Date: 20090219
  Transmission Date: 20100525
  Serious: No
  Sender: FDA-Public Use
  Company Number: US-ASTRAZENECA-2009UW04697

PATIENT
  Age: 78 Year
  Sex: Female
  Weight: 43.1 kg

DRUGS (4)
  1. CRESTOR [Suspect]
     Route: 048
  2. FENTANYL-100 [Concomitant]
  3. PRIMIDONE [Concomitant]
  4. CARDIA [Concomitant]

REACTIONS (2)
  - ALOPECIA [None]
  - WEIGHT DECREASED [None]
